FAERS Safety Report 14524314 (Version 2)
Quarter: 2018Q2

REPORT INFORMATION
  Report Type: Spontaneous
  Country: US (occurrence: US)
  Receive Date: 20180213
  Receipt Date: 20180405
  Transmission Date: 20180711
  Serious: No
  Sender: FDA-Public Use
  Company Number: US-PFIZER INC-2018057323

PATIENT
  Age: 35 Year
  Sex: Female

DRUGS (1)
  1. ARGININE HCL [Suspect]
     Active Substance: ARGININE HYDROCHLORIDE
     Dosage: UNK

REACTIONS (2)
  - Urticaria [Unknown]
  - Drug hypersensitivity [Unknown]
